FAERS Safety Report 26080196 (Version 1)
Quarter: 2025Q4

REPORT INFORMATION
  Report Type: Spontaneous
  Country: US (occurrence: US)
  Receive Date: 20251124
  Receipt Date: 20251124
  Transmission Date: 20260117
  Serious: Yes (Death)
  Sender: ROCHE
  Company Number: US-ROCHE-10000442255

PATIENT
  Sex: Male

DRUGS (12)
  1. AVASTIN [Suspect]
     Active Substance: BEVACIZUMAB
     Indication: Product used for unknown indication
     Dosage: FROM STRENGTH: 15 MG/KG
     Route: 042
     Dates: start: 20250422
  2. DIPHENHYDRAM POW [Concomitant]
  3. FAMOTIDINE POW [Concomitant]
  4. IVERMECTIN POW [Concomitant]
  5. LOPERAMIDE H POW [Concomitant]
  6. MELATONIN POW [Concomitant]
  7. OXYCONTIN T12 80MG [Concomitant]
  8. PERMETHRIN CRE 5% [Concomitant]
  9. TAMSULOSIN H CAP 0.4MG [Concomitant]
  10. VITAMIN B12 TAB 100MCG [Concomitant]
  11. AMLODIPINE B TAB 5MG [Concomitant]
  12. LOSARTAN POTASSIUM [Concomitant]
     Active Substance: LOSARTAN POTASSIUM

REACTIONS (1)
  - Death [Fatal]
